FAERS Safety Report 5176850-3 (Version None)
Quarter: 2006Q4

REPORT INFORMATION
  Report Type: 
  Country: None (occurrence: None)
  Receive Date: 20061218
  Receipt Date: 20061205
  Transmission Date: 20070319
  Serious: Yes (Hospitalization)
  Sender: FDA-Public Use
  Company Number: NL-JNJFOC-20061202842

PATIENT
  Sex: Male
  Weight: 75 kg

DRUGS (1)
  1. CONCERTA [Suspect]
     Indication: ATTENTION DEFICIT/HYPERACTIVITY DISORDER
     Route: 048

REACTIONS (4)
  - HEART RATE INCREASED [None]
  - PALPITATIONS [None]
  - SELF MUTILATION [None]
  - SUICIDAL IDEATION [None]
